FAERS Safety Report 4831219-3 (Version None)
Quarter: 2005Q4

REPORT INFORMATION
  Report Type: 
  Country: None (occurrence: None)
  Receive Date: 20051114
  Receipt Date: 20051102
  Transmission Date: 20060501
  Serious: Yes (Hospitalization)
  Sender: FDA-Public Use
  Company Number: 12470

PATIENT
  Age: 47 Year
  Sex: Female

DRUGS (3)
  1. CARBOPLATIN [Suspect]
  2. PACLITAXEL [Suspect]
  3. DMXAA [Suspect]
     Indication: OVARIAN EPITHELIAL CANCER RECURRENT
     Dosage: 2200 MG, IV
     Route: 042
     Dates: start: 20050628, end: 20050831

REACTIONS (4)
  - ABDOMINAL PAIN LOWER [None]
  - MELAENA [None]
  - VISION BLURRED [None]
  - VOMITING [None]
